FAERS Safety Report 6162381-0 (Version None)
Quarter: 2009Q2

REPORT INFORMATION
  Report Type: 
  Country: None (occurrence: None)
  Receive Date: 20090421
  Receipt Date: 20090408
  Transmission Date: 20091009
  Serious: Yes (Other)
  Sender: FDA-Public Use
  Company Number: FR-PFIZER INC-2009173940

PATIENT

DRUGS (3)
  1. ATARAX [Suspect]
     Indication: SEDATION
     Dosage: 10 ML, 1X/DAY
     Route: 048
  2. LAMICTAL [Concomitant]
     Indication: EPILEPSY
     Dosage: 150 MG, 1X/DAY
     Route: 048
  3. VALPROIC ACID [Concomitant]
     Indication: EPILEPSY
     Dosage: 250 MG, 2X/DAY

REACTIONS (2)
  - CONVULSION [None]
  - PETIT MAL EPILEPSY [None]
